FAERS Safety Report 7089109-4 (Version None)
Quarter: 2010Q4

REPORT INFORMATION
  Report Type: 
  Country: None (occurrence: None)
  Receive Date: 20101029
  Receipt Date: 20101015
  Transmission Date: 20110411
  Serious: Yes (Death)
  Sender: FDA-Public Use
  Company Number: AE 2010-330

PATIENT
  Age: 59 Year
  Sex: Male

DRUGS (15)
  1. FAZACLO ODT [Suspect]
     Indication: SCHIZOPHRENIA
     Dosage: 150 - 600 MG DAILY, ORAL
     Route: 048
     Dates: start: 20051011, end: 20101008
  2. ATIVAN [Concomitant]
  3. LOXAPINE [Concomitant]
  4. DEPAKOTE [Concomitant]
  5. SEROQUEL [Concomitant]
  6. LITHIUM [Concomitant]
  7. COGENTIN [Concomitant]
  8. DSS [Concomitant]
  9. METOPROLOL [Concomitant]
  10. VASOTEC [Concomitant]
  11. SYNTHROID [Concomitant]
  12. FERROUS SULFATE [Concomitant]
  13. MYLANTA [Concomitant]
  14. MILK OF MAGNESIA TAB [Concomitant]
  15. MULTIIVITAMIN [Concomitant]

REACTIONS (1)
  - CARDIAC ARREST [None]
